FAERS Safety Report 19912150 (Version 3)
Quarter: 2022Q2

REPORT INFORMATION
  Report Type: Report from Study
  Country: BE (occurrence: BE)
  Receive Date: 20211004
  Receipt Date: 20220405
  Transmission Date: 20220721
  Serious: Yes (Death)
  Sender: FDA-Public Use
  Company Number: BE-PFIZER INC-202101294246

PATIENT
  Age: 87 Year
  Sex: Male
  Weight: 79.6 kg

DRUGS (1)
  1. TAFAMIDIS [Suspect]
     Active Substance: TAFAMIDIS
     Indication: Cardiac amyloidosis
     Dosage: 61 MG, 1X/DAY (PILL)
     Route: 048
     Dates: start: 20201014, end: 20210716

REACTIONS (2)
  - Acute kidney injury [Fatal]
  - Sudden death [Fatal]

NARRATIVE: CASE EVENT DATE: 20210906
